FAERS Safety Report 5939042-3 (Version None)
Quarter: 2008Q4

REPORT INFORMATION
  Report Type: 
  Country: None (occurrence: None)
  Receive Date: 20081103
  Receipt Date: 20081024
  Transmission Date: 20090506
  Serious: Yes (Disabling)
  Sender: FDA-Public Use
  Company Number: JP-SANOFI-SYNTHELABO-A01200804604

PATIENT
  Sex: Male
  Weight: 53 kg

DRUGS (6)
  1. ISOVORIN [Concomitant]
     Dosage: FOLFOX-6
     Route: 041
     Dates: start: 20070910, end: 20070910
  2. ISOVORIN [Concomitant]
     Dosage: FOLFOX-4
     Route: 041
     Dates: start: 20071123, end: 20071124
  3. AVASTIN [Suspect]
     Route: 041
     Dates: start: 20071123, end: 20071123
  4. FLUOROURACIL [Suspect]
     Dosage: FOLFOX-4: 608 MG/BODY BOLUS THEN INFUSION 912 MG/BODY
     Route: 042
     Dates: start: 20071123, end: 20071124
  5. LEUCOVORIN CALCIUM [Suspect]
     Route: 042
     Dates: start: 20071123, end: 20071124
  6. ELPLAT [Suspect]
     Indication: RECTAL CANCER
     Route: 041
     Dates: start: 20071123, end: 20071123

REACTIONS (1)
  - ILEAL PERFORATION [None]
